FAERS Safety Report 20200560 (Version 4)
Quarter: 2022Q2

REPORT INFORMATION
  Report Type: Report from Study
  Country: CN (occurrence: None)
  Receive Date: 20211217
  Receipt Date: 20220630
  Transmission Date: 20220721
  Serious: Yes (Life-Threatening)
  Sender: FDA-Public Use
  Company Number: CN-ROCHE-2804881

PATIENT
  Age: 62 Year
  Sex: Male
  Weight: 60 kg

DRUGS (128)
  1. GLOFITAMAB [Suspect]
     Active Substance: GLOFITAMAB
     Indication: Diffuse large B-cell lymphoma refractory
     Dosage: MOST RECENT DOSE RECEIVED ON 02/APR/2021, 10 MG PRIOR TO EVENT ONSET.
     Route: 042
     Dates: start: 20210325
  2. OBINUTUZUMAB [Suspect]
     Active Substance: OBINUTUZUMAB
     Indication: Diffuse large B-cell lymphoma refractory
     Dosage: MOST RECENT DOSE RECEIVED ON 19/MAR/2021, 1000 MG PRIOR TO EVENT ONSET.
     Route: 042
     Dates: start: 20210319
  3. METHYLPREDNISOLONE [Concomitant]
     Active Substance: METHYLPREDNISOLONE
     Route: 042
     Dates: start: 20210402, end: 20210402
  4. METHYLPREDNISOLONE [Concomitant]
     Active Substance: METHYLPREDNISOLONE
     Route: 042
     Dates: start: 20210402, end: 20210402
  5. METHYLPREDNISOLONE [Concomitant]
     Active Substance: METHYLPREDNISOLONE
     Route: 042
     Dates: start: 20210325, end: 20210325
  6. METHYLPREDNISOLONE [Concomitant]
     Active Substance: METHYLPREDNISOLONE
     Route: 042
     Dates: start: 20210319, end: 20210319
  7. DIPHENHYDRAMINE [Concomitant]
     Active Substance: DIPHENHYDRAMINE
     Route: 030
     Dates: start: 20210402, end: 20210402
  8. INDOMETHACIN [Concomitant]
     Active Substance: INDOMETHACIN
     Indication: Pyrexia
     Route: 054
     Dates: start: 20210403, end: 20210403
  9. INDOMETHACIN [Concomitant]
     Active Substance: INDOMETHACIN
     Dosage: 0.3 OTHER
     Route: 054
     Dates: start: 20210403
  10. OXYGEN [Concomitant]
     Active Substance: OXYGEN
     Dosage: 3 L/ MIN
     Route: 055
     Dates: start: 20210328, end: 20210328
  11. DEXTRAN [Concomitant]
     Active Substance: DEXTRAN
     Dosage: 282.9 PG/ML
  12. OMEPRAZOLE [Concomitant]
     Active Substance: OMEPRAZOLE
     Route: 042
     Dates: start: 20210311, end: 20210315
  13. OMEPRAZOLE [Concomitant]
     Active Substance: OMEPRAZOLE
     Route: 042
     Dates: start: 20210322, end: 20210328
  14. OMEPRAZOLE [Concomitant]
     Active Substance: OMEPRAZOLE
     Route: 042
     Dates: start: 20210318, end: 20210320
  15. OMEPRAZOLE [Concomitant]
     Active Substance: OMEPRAZOLE
     Route: 042
     Dates: start: 20210329, end: 20210402
  16. OMEPRAZOLE [Concomitant]
     Active Substance: OMEPRAZOLE
     Route: 042
     Dates: start: 20210403, end: 20210404
  17. SODIUM POTASSIUM MAGNESIUM CALCIUM AND GLUCOSE [Concomitant]
     Route: 042
     Dates: start: 20210311, end: 20210315
  18. FAT EMULSION INJECTION (C14-24) [Concomitant]
     Route: 042
     Dates: start: 20210311, end: 20210315
  19. FAT EMULSION INJECTION (C14-24) [Concomitant]
     Route: 042
     Dates: start: 20210322, end: 20210328
  20. FAT EMULSION INJECTION (C14-24) [Concomitant]
     Route: 042
     Dates: start: 20210318, end: 20210318
  21. FAT EMULSION INJECTION (C14-24) [Concomitant]
     Route: 042
     Dates: start: 20210320, end: 20210321
  22. FAT EMULSION INJECTION (C14-24) [Concomitant]
     Route: 042
     Dates: start: 20210329, end: 20210402
  23. FAT EMULSION INJECTION (C14-24) [Concomitant]
     Route: 042
     Dates: start: 20210403, end: 20210403
  24. GLYCERIN [Concomitant]
     Active Substance: GLYCERIN
     Route: 054
     Dates: start: 20210311, end: 20210311
  25. FENTANYL [Concomitant]
     Active Substance: FENTANYL
     Indication: Analgesic therapy
     Route: 062
     Dates: start: 20210312, end: 20210312
  26. FENTANYL [Concomitant]
     Active Substance: FENTANYL
     Route: 062
     Dates: start: 20210313, end: 20210313
  27. FENTANYL [Concomitant]
     Active Substance: FENTANYL
     Route: 062
     Dates: start: 20210322, end: 20210322
  28. HEMOCOAGULASE BOTHROPS ATROX [Concomitant]
     Dosage: DOSE: 1 U
     Route: 042
     Dates: start: 20210313, end: 20210314
  29. HEMOCOAGULASE BOTHROPS ATROX [Concomitant]
     Dosage: 1 U
     Route: 042
     Dates: start: 20210322, end: 20210328
  30. DIPHENHYDRAMINE HYDROCHLORIDE [Concomitant]
     Active Substance: DIPHENHYDRAMINE HYDROCHLORIDE
     Route: 030
     Dates: start: 20210325, end: 20210325
  31. DIPHENHYDRAMINE HYDROCHLORIDE [Concomitant]
     Active Substance: DIPHENHYDRAMINE HYDROCHLORIDE
     Route: 030
     Dates: start: 20210319, end: 20210319
  32. DIPHENHYDRAMINE HYDROCHLORIDE [Concomitant]
     Active Substance: DIPHENHYDRAMINE HYDROCHLORIDE
     Route: 030
     Dates: start: 20210326, end: 20210326
  33. DIPHENHYDRAMINE HYDROCHLORIDE [Concomitant]
     Active Substance: DIPHENHYDRAMINE HYDROCHLORIDE
     Route: 030
     Dates: start: 20210327, end: 20210327
  34. DIPHENHYDRAMINE HYDROCHLORIDE [Concomitant]
     Active Substance: DIPHENHYDRAMINE HYDROCHLORIDE
     Route: 030
     Dates: start: 20210328, end: 20210328
  35. DIPHENHYDRAMINE HYDROCHLORIDE [Concomitant]
     Active Substance: DIPHENHYDRAMINE HYDROCHLORIDE
     Route: 030
     Dates: start: 20210329, end: 20210401
  36. DIPHENHYDRAMINE HYDROCHLORIDE [Concomitant]
     Active Substance: DIPHENHYDRAMINE HYDROCHLORIDE
     Route: 030
     Dates: start: 20210402, end: 20210403
  37. ACETAMINOPHEN\CAFFEINE [Concomitant]
     Active Substance: ACETAMINOPHEN\CAFFEINE
     Route: 048
     Dates: start: 20210325, end: 20210325
  38. ACETAMINOPHEN\CAFFEINE [Concomitant]
     Active Substance: ACETAMINOPHEN\CAFFEINE
     Route: 048
     Dates: start: 20210319, end: 20210319
  39. ALLOPURINOL [Concomitant]
     Active Substance: ALLOPURINOL
     Route: 048
     Dates: start: 20210320, end: 20210329
  40. MONTMORILLONITE [Concomitant]
     Active Substance: MONTMORILLONITE
     Route: 048
     Dates: start: 20210322, end: 20210324
  41. LOPERAMIDE HYDROCHLORIDE [Concomitant]
     Active Substance: LOPERAMIDE HYDROCHLORIDE
     Route: 048
     Dates: start: 20210322, end: 20210323
  42. SPIRONOLACTONE [Concomitant]
     Active Substance: SPIRONOLACTONE
     Indication: Polyuria
     Route: 048
     Dates: start: 20210323, end: 20210329
  43. HYDROCHLOROTHIAZIDE [Concomitant]
     Active Substance: HYDROCHLOROTHIAZIDE
     Indication: Polyuria
     Route: 048
     Dates: start: 20210323, end: 20210329
  44. SODIUM LACTATE RINGER^S [Concomitant]
     Route: 042
     Dates: start: 20210318, end: 20210321
  45. SODIUM LACTATE RINGER^S [Concomitant]
     Route: 042
     Dates: start: 20210326, end: 20210326
  46. SODIUM LACTATE RINGER^S [Concomitant]
     Route: 042
     Dates: start: 20210327, end: 20210328
  47. SODIUM LACTATE RINGER^S [Concomitant]
     Route: 042
     Dates: start: 20210330, end: 20210401
  48. SODIUM LACTATE RINGER^S [Concomitant]
     Route: 042
     Dates: start: 20210331, end: 20210401
  49. SODIUM LACTATE RINGER^S [Concomitant]
     Route: 042
     Dates: start: 20210403, end: 20210404
  50. SODIUM BICARBONATE [Concomitant]
     Active Substance: SODIUM BICARBONATE
     Route: 042
     Dates: start: 20210318, end: 20210319
  51. SODIUM BICARBONATE [Concomitant]
     Active Substance: SODIUM BICARBONATE
     Route: 042
     Dates: start: 20210320, end: 20210320
  52. SODIUM BICARBONATE [Concomitant]
     Active Substance: SODIUM BICARBONATE
     Route: 042
     Dates: start: 20210321, end: 20210321
  53. SODIUM BICARBONATE [Concomitant]
     Active Substance: SODIUM BICARBONATE
     Route: 042
     Dates: start: 20210326, end: 20210328
  54. SODIUM POTASSIUM MAGNESIUM CALCIUM AND GLUCOSE [Concomitant]
     Route: 042
     Dates: start: 20210318, end: 20210318
  55. FENTANYL TRANSDERMAL SYSTEM [Concomitant]
     Active Substance: FENTANYL
     Indication: Analgesic therapy
     Route: 062
     Dates: start: 20210318, end: 20210318
  56. FENTANYL TRANSDERMAL SYSTEM [Concomitant]
     Active Substance: FENTANYL
     Dosage: 1 OTHER
     Route: 062
     Dates: start: 20210324, end: 20210324
  57. FENTANYL TRANSDERMAL SYSTEM [Concomitant]
     Active Substance: FENTANYL
     Route: 062
     Dates: start: 20210330, end: 20210330
  58. FENTANYL TRANSDERMAL SYSTEM [Concomitant]
     Active Substance: FENTANYL
     Route: 062
     Dates: start: 20210322, end: 20210322
  59. FUROSEMIDE [Concomitant]
     Active Substance: FUROSEMIDE
     Indication: Polyuria
     Route: 042
     Dates: start: 20210320, end: 20210320
  60. FUROSEMIDE [Concomitant]
     Active Substance: FUROSEMIDE
     Route: 042
     Dates: start: 20210323, end: 20210323
  61. FUROSEMIDE [Concomitant]
     Active Substance: FUROSEMIDE
     Route: 042
     Dates: start: 20210324, end: 20210324
  62. FUROSEMIDE [Concomitant]
     Active Substance: FUROSEMIDE
     Route: 042
     Dates: start: 20210326, end: 20210327
  63. FUROSEMIDE [Concomitant]
     Active Substance: FUROSEMIDE
     Route: 042
     Dates: start: 20210329, end: 20210401
  64. FUROSEMIDE [Concomitant]
     Active Substance: FUROSEMIDE
     Route: 042
     Dates: start: 20210403, end: 20210403
  65. FUROSEMIDE [Concomitant]
     Active Substance: FUROSEMIDE
     Route: 042
     Dates: start: 20210404, end: 20210404
  66. FUROSEMIDE [Concomitant]
     Active Substance: FUROSEMIDE
     Route: 042
     Dates: start: 20210404, end: 20210404
  67. COMPOUND AMINOPHENAZONE AND BARBITAL [Concomitant]
     Indication: Premedication
     Route: 030
     Dates: start: 20210402, end: 20210402
  68. COMPOUND AMINOPHENAZONE AND BARBITAL [Concomitant]
     Route: 030
     Dates: start: 20210326, end: 20210327
  69. COMPOUND AMINOPHENAZONE AND BARBITAL [Concomitant]
     Route: 030
     Dates: start: 20210401, end: 20210401
  70. COMPOUND AMINOPHENAZONE AND BARBITAL [Concomitant]
     Route: 030
     Dates: start: 20210402, end: 20210402
  71. LIDOCAINE HYDROCHLORIDE [Concomitant]
     Active Substance: LIDOCAINE HYDROCHLORIDE
     Indication: Local anaesthesia
     Route: 058
     Dates: start: 20210322, end: 20210322
  72. SODIUM CHLORIDE [Concomitant]
     Active Substance: SODIUM CHLORIDE
     Route: 042
     Dates: start: 20210322, end: 20210322
  73. SODIUM CHLORIDE [Concomitant]
     Active Substance: SODIUM CHLORIDE
     Route: 042
     Dates: start: 20210322, end: 20210322
  74. SODIUM CHLORIDE [Concomitant]
     Active Substance: SODIUM CHLORIDE
     Route: 042
     Dates: start: 20210325, end: 20210325
  75. SODIUM CHLORIDE [Concomitant]
     Active Substance: SODIUM CHLORIDE
     Route: 042
     Dates: start: 20210325, end: 20210325
  76. SODIUM CHLORIDE [Concomitant]
     Active Substance: SODIUM CHLORIDE
     Route: 042
     Dates: start: 20210326, end: 20210328
  77. HYDROCORTISONE SODIUM SUCCINATE [Concomitant]
     Active Substance: HYDROCORTISONE SODIUM SUCCINATE
     Route: 042
     Dates: start: 20210322, end: 20210324
  78. ALBUMIN HUMAN [Concomitant]
     Active Substance: ALBUMIN HUMAN
     Route: 042
     Dates: start: 20210322, end: 20210324
  79. ALBUMIN HUMAN [Concomitant]
     Active Substance: ALBUMIN HUMAN
     Route: 042
     Dates: start: 20210326, end: 20210327
  80. ALBUMIN HUMAN [Concomitant]
     Active Substance: ALBUMIN HUMAN
     Route: 042
     Dates: start: 20210329, end: 20210401
  81. ALBUMIN HUMAN [Concomitant]
     Active Substance: ALBUMIN HUMAN
     Route: 042
     Dates: start: 20210331, end: 20210401
  82. ALBUMIN HUMAN [Concomitant]
     Active Substance: ALBUMIN HUMAN
     Route: 042
     Dates: start: 20210403, end: 20210403
  83. POTASSIUM CHLORIDE [Concomitant]
     Active Substance: POTASSIUM CHLORIDE
     Route: 042
     Dates: start: 20210322, end: 20210324
  84. POTASSIUM CHLORIDE [Concomitant]
     Active Substance: POTASSIUM CHLORIDE
     Route: 042
     Dates: start: 20210324, end: 20210324
  85. POTASSIUM CHLORIDE [Concomitant]
     Active Substance: POTASSIUM CHLORIDE
     Route: 042
     Dates: start: 20210325, end: 20210325
  86. POTASSIUM CHLORIDE [Concomitant]
     Active Substance: POTASSIUM CHLORIDE
     Route: 042
     Dates: start: 20210326, end: 20210326
  87. POTASSIUM CHLORIDE [Concomitant]
     Active Substance: POTASSIUM CHLORIDE
     Route: 042
     Dates: start: 20210326, end: 20210326
  88. POTASSIUM CHLORIDE [Concomitant]
     Active Substance: POTASSIUM CHLORIDE
     Route: 042
     Dates: start: 20210327, end: 20210328
  89. POTASSIUM CHLORIDE [Concomitant]
     Active Substance: POTASSIUM CHLORIDE
     Route: 042
     Dates: start: 20210328, end: 20210328
  90. POTASSIUM CHLORIDE [Concomitant]
     Active Substance: POTASSIUM CHLORIDE
     Route: 042
     Dates: start: 20210329, end: 20210402
  91. POTASSIUM CHLORIDE [Concomitant]
     Active Substance: POTASSIUM CHLORIDE
     Route: 042
     Dates: start: 20210331, end: 20210331
  92. POTASSIUM CHLORIDE [Concomitant]
     Active Substance: POTASSIUM CHLORIDE
     Route: 042
     Dates: start: 20210401, end: 20210401
  93. POTASSIUM CHLORIDE [Concomitant]
     Active Substance: POTASSIUM CHLORIDE
     Route: 042
     Dates: start: 20210329, end: 20210329
  94. CALCIUM GLUCONATE [Concomitant]
     Active Substance: CALCIUM GLUCONATE
     Route: 042
     Dates: start: 20210322, end: 20210322
  95. CALCIUM GLUCONATE [Concomitant]
     Active Substance: CALCIUM GLUCONATE
     Route: 042
     Dates: start: 20210324, end: 20210324
  96. CALCIUM GLUCONATE [Concomitant]
     Active Substance: CALCIUM GLUCONATE
     Route: 042
     Dates: start: 20210326, end: 20210326
  97. SODIUM CHLORIDE [Concomitant]
     Active Substance: SODIUM CHLORIDE
     Route: 042
     Dates: start: 20210322, end: 20210322
  98. POTASSIUM CHLORIDE [Concomitant]
     Active Substance: POTASSIUM CHLORIDE
     Route: 042
     Dates: start: 20210322, end: 20210322
  99. POTASSIUM CHLORIDE [Concomitant]
     Active Substance: POTASSIUM CHLORIDE
     Route: 042
     Dates: start: 20210403, end: 20210404
  100. BUCINNAZINE HYDROCHLORIDE [Concomitant]
     Route: 030
     Dates: start: 20210324, end: 20210325
  101. BUCINNAZINE HYDROCHLORIDE [Concomitant]
     Route: 030
     Dates: start: 20210329, end: 20210329
  102. MAGNESIUM ISOGLYCYRRHIZINATE [Concomitant]
     Active Substance: MAGNESIUM ISOGLYCYRRHIZINATE
     Route: 042
     Dates: start: 20210326, end: 20210327
  103. MAGNESIUM ISOGLYCYRRHIZINATE [Concomitant]
     Active Substance: MAGNESIUM ISOGLYCYRRHIZINATE
     Route: 042
     Dates: start: 20210329, end: 20210402
  104. MAGNESIUM ISOGLYCYRRHIZINATE [Concomitant]
     Active Substance: MAGNESIUM ISOGLYCYRRHIZINATE
     Route: 042
     Dates: start: 20210403, end: 20210404
  105. METOCLOPRAMIDE DIHYDROCHLORIDE [Concomitant]
     Route: 030
     Dates: start: 20210327, end: 20210328
  106. THROMBOPOIETIN [Concomitant]
     Active Substance: THROMBOPOIETIN
     Dosage: 15000 U
     Route: 055
     Dates: start: 20210329, end: 20210330
  107. METHYLPREDNISOLONE SODIUM SUCCINATE [Concomitant]
     Active Substance: METHYLPREDNISOLONE SODIUM SUCCINATE
     Route: 042
     Dates: start: 20210402, end: 20210402
  108. METHYLPREDNISOLONE SODIUM SUCCINATE [Concomitant]
     Active Substance: METHYLPREDNISOLONE SODIUM SUCCINATE
     Route: 042
     Dates: start: 20210404, end: 20210404
  109. METHYLPREDNISOLONE SODIUM SUCCINATE [Concomitant]
     Active Substance: METHYLPREDNISOLONE SODIUM SUCCINATE
     Route: 042
     Dates: start: 20210404, end: 20210404
  110. DYPHYLLINE [Concomitant]
     Active Substance: DYPHYLLINE
     Route: 042
     Dates: start: 20210404, end: 20210404
  111. DESLANOSIDE [Concomitant]
     Active Substance: DESLANOSIDE
     Route: 042
     Dates: start: 20210404, end: 20210404
  112. DEXAMETHASONE SODIUM PHOSPHATE [Concomitant]
     Active Substance: DEXAMETHASONE SODIUM PHOSPHATE
     Route: 042
     Dates: start: 20210404, end: 20210404
  113. MORPHINE HYDROCHLORIDE [Concomitant]
     Active Substance: MORPHINE HYDROCHLORIDE
     Route: 055
     Dates: start: 20210326, end: 20210328
  114. MORPHINE HYDROCHLORIDE [Concomitant]
     Active Substance: MORPHINE HYDROCHLORIDE
     Route: 055
     Dates: start: 20210329, end: 20210329
  115. MORPHINE HYDROCHLORIDE [Concomitant]
     Active Substance: MORPHINE HYDROCHLORIDE
     Route: 055
     Dates: start: 20210330, end: 20210330
  116. MORPHINE HYDROCHLORIDE [Concomitant]
     Active Substance: MORPHINE HYDROCHLORIDE
     Route: 055
     Dates: start: 20210331, end: 20210401
  117. MORPHINE HYDROCHLORIDE [Concomitant]
     Active Substance: MORPHINE HYDROCHLORIDE
     Route: 055
     Dates: start: 20210326, end: 20210328
  118. MORPHINE HYDROCHLORIDE [Concomitant]
     Active Substance: MORPHINE HYDROCHLORIDE
     Route: 055
     Dates: start: 20210329, end: 20210329
  119. MORPHINE HYDROCHLORIDE [Concomitant]
     Active Substance: MORPHINE HYDROCHLORIDE
     Route: 055
     Dates: start: 20210401, end: 20210401
  120. MORPHINE HYDROCHLORIDE [Concomitant]
     Active Substance: MORPHINE HYDROCHLORIDE
     Route: 055
     Dates: start: 20210402, end: 20210402
  121. GLYCERIN [Concomitant]
     Active Substance: GLYCERIN
     Route: 054
     Dates: start: 20210311, end: 20210311
  122. POTASSIUM CHLORIDE [Concomitant]
     Active Substance: POTASSIUM CHLORIDE
     Route: 042
     Dates: start: 20210330, end: 20210330
  123. POTASSIUM CHLORIDE [Concomitant]
     Active Substance: POTASSIUM CHLORIDE
     Route: 042
     Dates: start: 20210401, end: 20210401
  124. DEXTROSE\SODIUM CHLORIDE [Concomitant]
     Active Substance: DEXTROSE\SODIUM CHLORIDE
     Route: 042
     Dates: start: 20210403, end: 20210404
  125. DEXTROSE\SODIUM CHLORIDE [Concomitant]
     Active Substance: DEXTROSE\SODIUM CHLORIDE
     Route: 042
     Dates: start: 20210320, end: 20210321
  126. PHOSPHOLIPID [Concomitant]
     Active Substance: PHOSPHOLIPID
  127. PLATELETS [Concomitant]
     Active Substance: HUMAN PLATELET, ALLOGENIC
     Indication: Platelet count increased
     Dates: start: 20210401, end: 20210401
  128. BICYCLOL [Concomitant]
     Active Substance: BICYCLOL
     Route: 048
     Dates: start: 20210322

REACTIONS (1)
  - Cardiopulmonary failure [Not Recovered/Not Resolved]

NARRATIVE: CASE EVENT DATE: 20210404
